FAERS Safety Report 10523314 (Version 4)
Quarter: 2016Q1

REPORT INFORMATION
  Report Type: Report from Study
  Country: BR (occurrence: BR)
  Receive Date: 20141016
  Receipt Date: 20160316
  Transmission Date: 20160525
  Serious: Yes (Hospitalization, Other)
  Sender: FDA-Public Use
  Company Number: PHHY2014BR132221

PATIENT
  Age: 59 Year
  Sex: Female
  Weight: 69 kg

DRUGS (8)
  1. INSULIN [Concomitant]
     Active Substance: INSULIN NOS
     Indication: DIABETES MELLITUS
     Route: 065
  2. AFINITOR [Suspect]
     Active Substance: EVEROLIMUS
     Indication: NEUROENDOCRINE TUMOUR
     Dosage: 10 MG (1 TABLET), QD
     Route: 048
     Dates: start: 20130930
  3. AFINITOR [Suspect]
     Active Substance: EVEROLIMUS
     Indication: HEPATIC CANCER
  4. GLIFAGE [Concomitant]
     Active Substance: METFORMIN HYDROCHLORIDE
     Indication: DIABETES MELLITUS
     Route: 065
  5. FORXIGA [Concomitant]
     Active Substance: DAPAGLIFLOZIN
     Indication: DIABETES MELLITUS
     Route: 065
  6. TRADJENTA [Concomitant]
     Active Substance: LINAGLIPTIN
     Indication: DIABETES MELLITUS
     Route: 065
  7. FLUOXETINE [Concomitant]
     Active Substance: FLUOXETINE HYDROCHLORIDE
     Indication: DEPRESSION
     Dosage: 1 DF, QD
     Route: 065
     Dates: start: 201310
  8. CITALOPRAM [Concomitant]
     Active Substance: CITALOPRAM HYDROBROMIDE
     Indication: DEPRESSION
     Dosage: 1 DF, QD
     Route: 065

REACTIONS (29)
  - Anal fissure [Unknown]
  - Malignant neoplasm progression [Unknown]
  - Fluid retention [Unknown]
  - Umbilical hernia perforation [Not Recovered/Not Resolved]
  - Malaise [Recovering/Resolving]
  - Tremor [Unknown]
  - Dizziness [Unknown]
  - Back pain [Unknown]
  - Hypertension [Recovering/Resolving]
  - Dysgeusia [Recovering/Resolving]
  - Allergic cough [Recovered/Resolved]
  - Vision blurred [Recovering/Resolving]
  - Ascites [Unknown]
  - Weight increased [Unknown]
  - Peripheral swelling [Unknown]
  - Weight decreased [Not Recovered/Not Resolved]
  - Product use issue [Unknown]
  - Blood pressure abnormal [Unknown]
  - Terminal state [Unknown]
  - Haemorrhoids [Unknown]
  - Asthenia [Recovering/Resolving]
  - Abdominal distension [Unknown]
  - Decreased appetite [Recovering/Resolving]
  - Nausea [Recovering/Resolving]
  - Sleep disorder [Unknown]
  - Hypophagia [Unknown]
  - Headache [Unknown]
  - Ageusia [Unknown]
  - Drug ineffective [Unknown]

NARRATIVE: CASE EVENT DATE: 201310
